FAERS Safety Report 7895955-7 (Version None)
Quarter: 2011Q4

REPORT INFORMATION
  Report Type: 
  Country: None (occurrence: None)
  Receive Date: 20111102
  Receipt Date: 20111026
  Transmission Date: 20120403
  Serious: Yes (Death, Hospitalization)
  Sender: FDA-Public Use
  Company Number: AUR-APL-2011-05570

PATIENT
  Age: 74 Year
  Sex: Male
  Weight: 70.75 kg

DRUGS (9)
  1. FLORINEF [Concomitant]
  2. PLAVIX [Suspect]
     Indication: CARDIOVASCULAR EVENT PROPHYLAXIS
     Dosage: 25 MG
     Dates: start: 20100902
  3. NAMENDA [Concomitant]
  4. LOVASTATIN [Concomitant]
  5. VESICARE [Concomitant]
  6. BAPINEUZUMAB [Suspect]
     Indication: DEMENTIA ALZHEIMER'S TYPE
     Dosage: 0.0055 MG/KR (0.5 MG/KG, 1 IN 13 WK), PARENTERAL
     Route: 051
     Dates: start: 20110831, end: 20110831
  7. ARICEPT [Concomitant]
  8. ASPIRIN [Suspect]
     Indication: PROPHYLAXIS
     Dosage: 81 MG
     Dates: start: 20100831
  9. METOPROLOL SUCCINATE [Suspect]
     Indication: CARDIOVASCULAR EVENT PROPHYLAXIS
     Dosage: 50 MG (25 MG, 2 IN 1 D)
     Dates: start: 20100902

REACTIONS (11)
  - HAEMOGLOBIN DECREASED [None]
  - RUPTURED CEREBRAL ANEURYSM [None]
  - BLOOD PH INCREASED [None]
  - BLOOD BICARBONATE INCREASED [None]
  - TENSION HEADACHE [None]
  - BLOOD CALCIUM DECREASED [None]
  - PO2 INCREASED [None]
  - BLOOD GLUCOSE INCREASED [None]
  - SUBARACHNOID HAEMORRHAGE [None]
  - HAEMATOCRIT INCREASED [None]
  - INTRAVENTRICULAR HAEMORRHAGE [None]
